FAERS Safety Report 10264839 (Version 2)
Quarter: 2014Q2

REPORT INFORMATION
  Report Type: Report from Study
  Country: GB (occurrence: GB)
  Receive Date: 20140627
  Receipt Date: 20140627
  Transmission Date: 20141212
  Serious: No
  Sender: FDA-Public Use
  Company Number: GB-SA-2014SA046432

PATIENT
  Age: 40 Year
  Sex: Male
  Weight: 82.6 kg

DRUGS (1)
  1. ALEMTUZUMAB [Suspect]
     Indication: MULTIPLE SCLEROSIS
     Route: 065

REACTIONS (1)
  - Malignant melanoma in situ [Recovered/Resolved]
